FAERS Safety Report 5453508-4 (Version None)
Quarter: 2007Q3

REPORT INFORMATION
  Report Type: 
  Country: None (occurrence: None)
  Receive Date: 20070913
  Receipt Date: 20070823
  Transmission Date: 20080115
  Serious: Yes (Hospitalization)
  Sender: FDA-Public Use
  Company Number: 6124 / 6037420

PATIENT
  Age: 41 Year
  Sex: Female

DRUGS (1)
  1. CLARITHROMYCIN [Suspect]
     Indication: ACUTE SINUSITIS
     Dosage: 1000 MG (500MG, 2 IN D)

REACTIONS (10)
  - CYANOSIS [None]
  - DRUG INTERACTION [None]
  - ERGOT POISONING [None]
  - FEELING COLD [None]
  - HEADACHE [None]
  - OEDEMA [None]
  - PAIN IN EXTREMITY [None]
  - PALLOR [None]
  - PARAESTHESIA [None]
  - PERIPHERAL VASCULAR DISORDER [None]
